FAERS Safety Report 11652599 (Version 1)
Quarter: 2015Q4

REPORT INFORMATION
  Report Type: Other
  Country: US (occurrence: US)
  Receive Date: 20151022
  Receipt Date: 20151022
  Transmission Date: 20160304
  Serious: No
  Sender: FDA-Public Use
  Company Number: US-DEP_07658_2015

PATIENT
  Age: 46 Year
  Sex: Male
  Weight: 83.92 kg

DRUGS (14)
  1. MERCAPTOPURINE. [Concomitant]
     Active Substance: MERCAPTOPURINE
     Indication: CROHN^S DISEASE
     Dosage: 50 MG, 1/DAY
     Route: 048
  2. METFORMIN [Concomitant]
     Active Substance: METFORMIN HYDROCHLORIDE
     Indication: DIABETES MELLITUS
     Dosage: 1000 MG, 2/DAY
     Route: 048
  3. MULTIVITAMINS [Concomitant]
     Active Substance: VITAMINS
     Indication: MULTI-VITAMIN DEFICIENCY
     Dosage: UNK
  4. OXYCODONE [Suspect]
     Active Substance: OXYCODONE
     Indication: PRODUCT USED FOR UNKNOWN INDICATION
     Dosage: 10 MG, UNK
     Dates: start: 2014
  5. ASPIRIN. [Concomitant]
     Active Substance: ASPIRIN
     Indication: PROPHYLAXIS
     Dosage: 81 MG, 1/DAY
     Route: 048
  6. OMEPRAZOLE. [Concomitant]
     Active Substance: OMEPRAZOLE
     Indication: HIATUS HERNIA
     Dosage: 20 MG, 2/DAY
     Route: 048
  7. VALIUM [Concomitant]
     Active Substance: DIAZEPAM
     Indication: ANXIETY
     Dosage: 10 MG, 1/DAY
     Route: 048
  8. HYDROCHLOROTHIAZIDE AND LISINOPRIL [Concomitant]
     Active Substance: HYDROCHLOROTHIAZIDE\LISINOPRIL
     Indication: HYPERTENSION
     Dosage: 20 MG, 1/DAY
     Route: 048
  9. NUCYNTA ER [Suspect]
     Active Substance: TAPENTADOL HYDROCHLORIDE
     Indication: FIBROMYALGIA
     Dosage: 200 MG, 2/DAY
     Route: 048
     Dates: start: 201410
  10. FLONASE [Concomitant]
     Active Substance: FLUTICASONE PROPIONATE
     Indication: SEASONAL ALLERGY
     Dosage: 2 DF, 1/DAY
     Route: 045
  11. PENTASA [Concomitant]
     Active Substance: MESALAMINE
     Indication: CROHN^S DISEASE
     Dosage: 500 MG, 2/DAY
     Route: 048
  12. SIMVASTATIN. [Concomitant]
     Active Substance: SIMVASTATIN
     Indication: BLOOD CHOLESTEROL INCREASED
     Dosage: 20 MG, 1/DAY
     Route: 048
  13. BACLOFEN. [Concomitant]
     Active Substance: BACLOFEN
     Indication: ANALGESIC THERAPY
     Dosage: 10 MG, UNK
     Route: 045
     Dates: start: 201409
  14. NUCYNTA ER [Suspect]
     Active Substance: TAPENTADOL HYDROCHLORIDE
     Indication: PAIN
     Dosage: 200 MG, 2/DAY
     Route: 048
     Dates: start: 201410

REACTIONS (4)
  - Withdrawal syndrome [Not Recovered/Not Resolved]
  - Drug ineffective [Not Recovered/Not Resolved]
  - Hand fracture [Not Recovered/Not Resolved]
  - Accident [Not Recovered/Not Resolved]

NARRATIVE: CASE EVENT DATE: 201409
